FAERS Safety Report 10763406 (Version 2)
Quarter: 2015Q1

REPORT INFORMATION
  Report Type: Spontaneous
  Country: ZA (occurrence: ZA)
  Receive Date: 20150204
  Receipt Date: 20150306
  Transmission Date: 20150721
  Serious: Yes (Hospitalization)
  Sender: FDA-Public Use
  Company Number: ZA-PFIZER INC-2015042175

PATIENT
  Age: 80 Year
  Sex: Male

DRUGS (3)
  1. MYLACAND PLUS [Concomitant]
     Active Substance: CANDESARTAN CILEXETIL\HYDROCHLOROTHIAZIDE
     Indication: HYPERTENSION
     Dosage: UNK
     Dates: start: 2010, end: 201502
  2. URBANOL [Concomitant]
     Active Substance: CLOBAZAM
     Indication: ANXIETY
     Dosage: 10 MG, DAILY
     Route: 048
  3. ASPAVOR [Suspect]
     Active Substance: ATORVASTATIN
     Indication: HYPERCHOLESTEROLAEMIA
     Dosage: 10 MG, UNK
     Route: 048
     Dates: start: 2010, end: 201502

REACTIONS (7)
  - Hypotension [Unknown]
  - Hernia [Recovered/Resolved]
  - Constipation [Unknown]
  - Urinary retention [Unknown]
  - Prostatic disorder [Recovering/Resolving]
  - Infection [Unknown]
  - Blood iron decreased [Unknown]

NARRATIVE: CASE EVENT DATE: 20150128
